FAERS Safety Report 9841396 (Version 1)
Quarter: 2013Q4

REPORT INFORMATION
  Report Type: Spontaneous
  Country: US (occurrence: None)
  Receive Date: 20131219
  Receipt Date: 20131219
  Transmission Date: 20140711
  Serious: Yes (Other)
  Sender: FDA-Public Use
  Company Number: 163-20785-12110089

PATIENT
  Age: 69 Year
  Sex: Male
  Weight: 106.14 kg

DRUGS (9)
  1. THALOMID [Suspect]
     Indication: PLASMA CELL MYELOMA
     Dosage: 1 IN 1 D
     Route: 048
     Dates: start: 20120512, end: 20130412
  2. METOPROLOL [Concomitant]
  3. CENTRUM [Concomitant]
  4. BAYER ASPIRIN [Concomitant]
  5. POTASSIUM CHLORIDE [Concomitant]
  6. ALLEGRA [Concomitant]
  7. FUROSEMIDE [Concomitant]
  8. VICODIN [Concomitant]
  9. FLAXSEED [Concomitant]

REACTIONS (8)
  - Renal pain [None]
  - Hypothyroidism [None]
  - Dry mouth [None]
  - Oedema peripheral [None]
  - Neuropathy peripheral [None]
  - Peripheral coldness [None]
  - Weight increased [None]
  - Back injury [None]
